FAERS Safety Report 5210478-1 (Version None)
Quarter: 2007Q1

REPORT INFORMATION
  Report Type: 
  Country: None (occurrence: None)
  Receive Date: 20070116
  Receipt Date: 20070116
  Transmission Date: 20070707
  Serious: Yes (Other)
  Sender: FDA-Public Use
  Company Number: None

PATIENT
  Age: 78 Year
  Sex: Male
  Weight: 71.6683 kg

DRUGS (3)
  1. PRAVASTATIN [Suspect]
     Indication: HEPATIC CIRRHOSIS
     Dosage: 40MG, 1 TABLET DAILY
     Dates: start: 20060710, end: 20061105
  2. PRAVASTATIN [Suspect]
     Indication: HEPATITIS C
     Dosage: 40MG, 1 TABLET DAILY
     Dates: start: 20060710, end: 20061105
  3. PRAVASTATIN [Suspect]
     Indication: ISCHAEMIA
     Dosage: 40MG, 1 TABLET DAILY
     Dates: start: 20060710, end: 20061105

REACTIONS (1)
  - ERECTILE DYSFUNCTION [None]
